FAERS Safety Report 18160233 (Version 1)
Quarter: 2020Q3

REPORT INFORMATION
  Report Type: Spontaneous
  Country: CA (occurrence: CA)
  Receive Date: 20200818
  Receipt Date: 20200818
  Transmission Date: 20201103
  Serious: Yes (Hospitalization)
  Sender: FDA-Public Use
  Company Number: CA-ACCORD-195456

PATIENT
  Age: 74 Year
  Sex: Female
  Weight: 39 kg

DRUGS (19)
  1. INSTILLAGEL [Concomitant]
     Active Substance: CHLORHEXIDINE GLUCONATE\LIDOCAINE HYDROCHLORIDE
  2. RISEDRONIC ACID [Concomitant]
     Active Substance: RISEDRONIC ACID
  3. DECADRON [Concomitant]
     Active Substance: DEXAMETHASONE
  4. VITAMIN D [Concomitant]
     Active Substance: VITAMIN D NOS
  5. CALCIUM GLUCONATE. [Concomitant]
     Active Substance: CALCIUM GLUCONATE
  6. EMOLAX [Concomitant]
     Route: 048
  7. ACETYLSALICYLIC ACID [Concomitant]
     Active Substance: ASPIRIN
  8. B COMPLEX 50 [Concomitant]
  9. COLACE [Concomitant]
     Active Substance: DOCUSATE SODIUM
  10. LAXATIF FIBRE [Concomitant]
  11. NYSTATIN/NYSTATIN/LIPOSOME [Concomitant]
     Active Substance: NYSTATIN
  12. SENOKOT [Concomitant]
     Active Substance: SENNOSIDES
  13. ESTRADIOL. [Concomitant]
     Active Substance: ESTRADIOL
  14. MITOMYCIN. [Suspect]
     Active Substance: MITOMYCIN
     Indication: ANAL CANCER
     Dosage: FOR?INJECTION USP SINGLE?USE VIAL
     Route: 042
  15. RESTASIS [Concomitant]
     Active Substance: CYCLOSPORINE
  16. OXAZEPAM. [Concomitant]
     Active Substance: OXAZEPAM
  17. STEMETIL [Concomitant]
     Active Substance: PROCHLORPERAZINE
  18. FLUOROURACIL. [Suspect]
     Active Substance: FLUOROURACIL
     Indication: ANAL CANCER
     Route: 042
  19. SALOFALK [Concomitant]

REACTIONS (2)
  - Symmetrical drug-related intertriginous and flexural exanthema [Unknown]
  - Hypophagia [Unknown]
